FAERS Safety Report 14094348 (Version 3)
Quarter: 2022Q2

REPORT INFORMATION
  Report Type: Report from Study
  Country: GB (occurrence: GB)
  Receive Date: 20171016
  Receipt Date: 20220427
  Transmission Date: 20220721
  Serious: Yes (Hospitalization)
  Sender: FDA-Public Use
  Company Number: GB-PFIZER INC-2017436853

PATIENT
  Sex: Male
  Weight: 53.9 kg

DRUGS (13)
  1. MITOXANTRONE HYDROCHLORIDE [Suspect]
     Active Substance: MITOXANTRONE HYDROCHLORIDE
     Indication: Acute myeloid leukaemia
     Dosage: MG/M2, CYCLIC (FREQ: 06 (IN D./QUOTID/O.D.))
     Route: 042
  2. GEMTUZUMAB OZOGAMICIN [Suspect]
     Active Substance: GEMTUZUMAB OZOGAMICIN
     Indication: Acute myeloid leukaemia
     Dosage: MG, FREQ: 97- (OTHER(SPECIFY REASON AS FREE TEXT UNDER CODE ON FORM)
     Route: 042
  3. DAUNORUBICIN [Suspect]
     Active Substance: DAUNORUBICIN
     Indication: Acute myeloid leukaemia
     Dosage: MG, FREQ: 7- DIEB. ALB
     Route: 042
  4. METOCLOPRAMIDE [Concomitant]
     Active Substance: METOCLOPRAMIDE
     Indication: Vomiting
     Dosage: 5 MG, 3X/DAY
     Dates: start: 20170924
  5. MORPHINE SULFATE [Concomitant]
     Active Substance: MORPHINE SULFATE
     Indication: Pain
     Dosage: 15 MG, 2X/DAY
     Dates: start: 20170922
  6. OMEPRAZOLE [Concomitant]
     Active Substance: OMEPRAZOLE
     Indication: Gastritis
     Dosage: 40 MG, CYCLIC
     Dates: start: 20170918
  7. PREDNISOLONE [Concomitant]
     Active Substance: PREDNISOLONE
     Indication: Arthritis
     Dosage: 10 MG, CYCLIC
     Dates: start: 20170926
  8. RANITIDINE [Concomitant]
     Active Substance: RANITIDINE
     Indication: Gastritis
     Dosage: 150 MG, 2X/DAY
     Dates: start: 20170918
  9. ALLOPURINOL [Concomitant]
     Active Substance: ALLOPURINOL
     Indication: Tumour lysis syndrome
     Dosage: 200 MG, 2X/DAY
     Dates: start: 20170922
  10. CIPROFLOXACIN [Concomitant]
     Active Substance: CIPROFLOXACIN
     Indication: Infection prophylaxis
     Dosage: 250 MG, 2X/DAY
     Dates: start: 20170922
  11. DOCUSATE SODIUM [Concomitant]
     Active Substance: DOCUSATE SODIUM
     Indication: Constipation
     Dosage: 100 MG, 2X/DAY
     Dates: start: 20170922
  12. ITRACONAZOLE [Concomitant]
     Active Substance: ITRACONAZOLE
     Indication: Prophylaxis
     Dosage: 130 MG, 2X/DAY
     Dates: start: 20170920
  13. PEPTAC [RANITIDINE HYDROCHLORIDE] [Concomitant]
     Indication: Gastritis
     Dosage: 10 ML, 1X/DAY
     Dates: start: 20170917

REACTIONS (1)
  - Skin infection [Recovered/Resolved]
